FAERS Safety Report 5237469-9 (Version None)
Quarter: 2007Q1

REPORT INFORMATION
  Report Type: 
  Country: None (occurrence: None)
  Receive Date: 20070213
  Receipt Date: 20070201
  Transmission Date: 20070707
  Serious: Yes (Hospitalization, Other)
  Sender: FDA-Public Use
  Company Number: DE-ELI_LILLY_AND_COMPANY-DE200702000627

PATIENT
  Age: 70 Year
  Sex: Female

DRUGS (2)
  1. GEMZAR [Suspect]
     Indication: BLADDER CANCER
     Route: 042
     Dates: start: 20061201
  2. CISPLATIN [Concomitant]
     Route: 042

REACTIONS (3)
  - CONVULSION [None]
  - HEADACHE [None]
  - VASCULITIS CEREBRAL [None]
